FAERS Safety Report 4276564-8 (Version None)
Quarter: 2004Q1

REPORT INFORMATION
  Report Type: 
  Country: None (occurrence: None)
  Receive Date: 20040120
  Receipt Date: 20040109
  Transmission Date: 20041129
  Serious: Yes (Death, Hospitalization, Other)
  Sender: FDA-Public Use
  Company Number: USA-2002-0002970

PATIENT
  Age: 42 Year
  Sex: Male

DRUGS (18)
  1. OXYCONTIN [Suspect]
     Indication: PAIN
     Dosage: SEE IMAGE
     Route: 048
     Dates: start: 19980101, end: 20010701
  2. OXYCONTIN [Suspect]
     Indication: PAIN
     Dosage: SEE IMAGE
     Route: 048
     Dates: start: 19980317, end: 20010701
  3. PERCOCET [Suspect]
     Indication: PAIN
     Dosage: Q3H PRN, ORAL
     Route: 048
  4. LORTYAB (HYDROCODONE BITARTRATE, PARACETAMOL) [Suspect]
     Indication: PAIN
     Dosage: Q6, 8H, ORAL
     Route: 048
  5. VALIUM [Suspect]
     Indication: MUSCLE SPASMS
     Dosage: 5 MG, Q6H, ORAL
     Route: 048
     Dates: start: 19980318
  6. PROZAC [Suspect]
     Dosage: NOCTE
  7. AMBIEN (ZOLIPIDEM TARTRATE) [Concomitant]
  8. MILK OF MAGNESIA (MAGNESIUM HYDROXIDE) [Concomitant]
  9. BENADRYL [Concomitant]
  10. COLACE [Concomitant]
  11. MORPHINE SULFATE (SIMILAR TO NDA 19-516)(MORPHINE SULFATE, MORPHINE SU [Concomitant]
  12. MEDROL (METHYLPRENDISOLONE) [Concomitant]
  13. AMITRIPTYLINE HCL [Concomitant]
  14. CELEBREX [Concomitant]
  15. PRILOSEC [Concomitant]
  16. DEMEROL [Concomitant]
  17. DALMANE (FLURAZEPAM HYDROCHLORIDED) [Concomitant]
  18. LIPITOR [Concomitant]

REACTIONS (44)
  - ACCIDENTAL OVERDOSE [None]
  - ANXIETY [None]
  - ASTHENIA [None]
  - BACK PAIN [None]
  - BLOOD CHOLESTEROL INCREASED [None]
  - BLOOD TRIGLYCERIDES INCREASED [None]
  - BRONCHITIS [None]
  - BURNS SECOND DEGREE [None]
  - CARDIOMEGALY [None]
  - COMA [None]
  - CONDITION AGGRAVATED [None]
  - CONFUSIONAL STATE [None]
  - COUGH [None]
  - DEPRESSION [None]
  - DIZZINESS [None]
  - DRUG DEPENDENCE [None]
  - DRUG INEFFECTIVE [None]
  - DRUG TOLERANCE [None]
  - DRUG TOXICITY [None]
  - DRUG WITHDRAWAL SYNDROME [None]
  - ERECTILE DYSFUNCTION [None]
  - FALL [None]
  - GAIT DISTURBANCE [None]
  - GASTROOESOPHAGEAL REFLUX DISEASE [None]
  - HAEMOPTYSIS [None]
  - HEAD INJURY [None]
  - HEADACHE [None]
  - HEART RATE IRREGULAR [None]
  - HERPES ZOSTER [None]
  - HYPERTROPHIC CARDIOMYOPATHY [None]
  - INSOMNIA [None]
  - IRRITABILITY [None]
  - LOSS OF CONSCIOUSNESS [None]
  - MICTURITION DISORDER [None]
  - MULTIPLE DRUG OVERDOSE [None]
  - NECK INJURY [None]
  - NECK PAIN [None]
  - PAIN IN EXTREMITY [None]
  - PANIC ATTACK [None]
  - RESPIRATORY ARREST [None]
  - TREMOR [None]
  - VENTRICULAR HYPERTROPHY [None]
  - VISUAL DISTURBANCE [None]
  - WEIGHT DECREASED [None]
